FAERS Safety Report 10712976 (Version 2)
Quarter: 2015Q1

REPORT INFORMATION
  Report Type: Report from Study
  Country: DE (occurrence: DE)
  Receive Date: 20150115
  Receipt Date: 20150225
  Transmission Date: 20150721
  Serious: Yes (Other)
  Sender: FDA-Public Use
  Company Number: PHHY2014DE054982

PATIENT
  Sex: Male
  Weight: 78.8 kg

DRUGS (9)
  1. INC424 [Suspect]
     Active Substance: RUXOLITINIB
     Indication: MYELOFIBROSIS
     Dosage: 2 DF, QD (15 MG)
     Route: 048
     Dates: start: 20130527, end: 20130911
  2. INC424 [Suspect]
     Active Substance: RUXOLITINIB
     Dosage: 1 DF, QD (15 MG)
     Route: 048
     Dates: start: 20130911, end: 20131009
  3. BISOHEXAL [Concomitant]
     Active Substance: BISOPROLOL FUMARATE
     Indication: HYPERTENSION
     Dosage: 7.5 MG, 1-0-1/2
     Route: 048
     Dates: start: 20090715
  4. ALLOBETA [Concomitant]
     Indication: GOUT
     Dosage: 1 DF, QD, 1-0-0
     Route: 048
     Dates: start: 2010
  5. RAMILICH [Concomitant]
     Active Substance: RAMIPRIL
     Indication: HYPERTENSION
     Dosage: 1 DF, QD, 1-0-0
     Route: 048
     Dates: start: 2009
  6. INC424 [Suspect]
     Active Substance: RUXOLITINIB
     Dosage: 1 DF, QD (15 MG)
     Route: 048
     Dates: start: 20131017, end: 20140527
  7. INC424 [Suspect]
     Active Substance: RUXOLITINIB
     Dosage: 20 MG, (1 DF AT 5 MG, 1 DF AT 15 MG), QD
     Route: 048
     Dates: start: 20140528, end: 20140610
  8. CO-DIOVAN [Suspect]
     Active Substance: HYDROCHLOROTHIAZIDE\VALSARTAN
     Indication: HYPERTENSION
     Dosage: 1 OT, (160 VALSARTAN + 12.5 HYDROCHLOROTHIAZIDE) UNK
     Route: 065
     Dates: start: 20090715
  9. ERYTHROPOIETIN [Concomitant]
     Active Substance: ERYTHROPOIETIN
     Indication: PRODUCT USED FOR UNKNOWN INDICATION
     Dosage: 1 DF, QD, 30000, 1X1 INJECTION
     Route: 065
     Dates: start: 20130522

REACTIONS (1)
  - Gamma-glutamyltransferase increased [Unknown]

NARRATIVE: CASE EVENT DATE: 20131017
